FAERS Safety Report 17198929 (Version 10)
Quarter: 2021Q3

REPORT INFORMATION
  Report Type: Report from Study
  Country: CA (occurrence: CA)
  Receive Date: 20191225
  Receipt Date: 20210702
  Transmission Date: 20211014
  Serious: Yes (Other)
  Sender: FDA-Public Use
  Company Number: NVSC2019CA077102

PATIENT
  Age: 72 Year
  Sex: Male

DRUGS (27)
  1. HIDROCORTIZON [Concomitant]
     Indication: SKIN EXFOLIATION
     Dosage: 1 %
     Route: 065
  2. SANDOZ?BISOPROLOL [Concomitant]
     Active Substance: BISOPROLOL FUMARATE
     Indication: PRODUCT USED FOR UNKNOWN INDICATION
     Dosage: UNK UNK, QD
     Route: 048
  3. IBUPROFEN. [Concomitant]
     Active Substance: IBUPROFEN
     Indication: PRODUCT USED FOR UNKNOWN INDICATION
     Dosage: UNK
     Route: 065
  4. GEN?SIMVASTATIN [Concomitant]
     Indication: CARDIAC DISORDER
     Dosage: 20 MG
     Route: 065
  5. APO?FUROSEMIDE [Concomitant]
     Active Substance: FUROSEMIDE
     Indication: JOINT SWELLING
     Dosage: UNK
     Route: 065
  6. RANITIDINE. [Concomitant]
     Active Substance: RANITIDINE
     Indication: PRODUCT USED FOR UNKNOWN INDICATION
     Dosage: UNK
     Route: 065
  7. ATROPINE SULFATE. [Concomitant]
     Active Substance: ATROPINE SULFATE
     Indication: PRODUCT USED FOR UNKNOWN INDICATION
     Dosage: UNK
     Route: 065
  8. KETOTIFEN FUMARATE. [Concomitant]
     Active Substance: KETOTIFEN FUMARATE
     Indication: BLEPHARITIS
     Dosage: UNK (AT LEAST EVERY 2 YEARS)
     Route: 065
  9. HIDROCORTIZON [Concomitant]
     Indication: RASH
  10. CEDOCARD?SR [Concomitant]
     Indication: ANGINA PECTORIS
     Dosage: 2 DF, QID
     Route: 065
  11. COSENTYX [Suspect]
     Active Substance: SECUKINUMAB
     Indication: PSORIATIC ARTHROPATHY
     Dosage: 150 MG, QW
     Route: 058
     Dates: start: 20191207
  12. COSENTYX [Suspect]
     Active Substance: SECUKINUMAB
     Dosage: 150 MG, QMO
     Route: 058
     Dates: start: 20191207, end: 20200204
  13. NITROGLYCERIN. [Concomitant]
     Active Substance: NITROGLYCERIN
     Indication: PRODUCT USED FOR UNKNOWN INDICATION
     Dosage: UNK
     Route: 065
  14. SALBUTAMOL [Concomitant]
     Active Substance: ALBUTEROL
     Indication: DYSPNOEA
     Dosage: 1?2PUFFS
     Route: 065
  15. SALBUTAMOL [Concomitant]
     Active Substance: ALBUTEROL
     Indication: COUGH
  16. VOLTAREN [Concomitant]
     Active Substance: DICLOFENAC SODIUM
     Indication: PRODUCT USED FOR UNKNOWN INDICATION
     Dosage: UNK
     Route: 065
  17. STATEX [Concomitant]
     Indication: BREAKTHROUGH PAIN
     Dosage: 5 MG (1 TABLET) EVERY 4 HOURS
     Route: 065
  18. APO?METOPROLOL [Concomitant]
     Active Substance: METOPROLOL
     Indication: HEART RATE DECREASED
  19. APO?DIAZEPAM [Concomitant]
     Active Substance: DIAZEPAM
     Indication: MUSCLE SPASMS
     Dosage: 2 MG
     Route: 065
  20. RATIO?MELOXICAM [Concomitant]
     Indication: PAIN IN EXTREMITY
     Dosage: UNK
     Route: 065
  21. ZADITOR [Concomitant]
     Active Substance: KETOTIFEN FUMARATE
     Indication: BLEPHARITIS
     Dosage: 0.25 %, UNKNOWN (TAKES EVERY 2 YEARS ONLY)
     Route: 065
  22. SANDOZ?METFORMIN FC [Concomitant]
     Active Substance: METFORMIN HYDROCHLORIDE
     Indication: PRODUCT USED FOR UNKNOWN INDICATION
     Dosage: UNK
     Route: 065
  23. PREDNISONE. [Concomitant]
     Active Substance: PREDNISONE
     Indication: PRODUCT USED FOR UNKNOWN INDICATION
     Dosage: UNK
     Route: 065
  24. RATIO?MELOXICAM [Concomitant]
     Indication: PERIPHERAL SWELLING
  25. SALBUTAMOL [Concomitant]
     Active Substance: ALBUTEROL
     Indication: WHEEZING
  26. APO?METOPROLOL [Concomitant]
     Active Substance: METOPROLOL
     Indication: HYPERTENSION
     Dosage: 5 MG
     Route: 065
  27. METHOTREXATE. [Concomitant]
     Active Substance: METHOTREXATE
     Indication: PRODUCT USED FOR UNKNOWN INDICATION
     Dosage: UNK UNK, QW
     Route: 048
     Dates: start: 202006

REACTIONS (12)
  - Enthesopathy [Unknown]
  - Musculoskeletal stiffness [Unknown]
  - Fall [Unknown]
  - Exostosis [Unknown]
  - Pain [Not Recovered/Not Resolved]
  - Oropharyngeal pain [Unknown]
  - Psoriatic arthropathy [Recovering/Resolving]
  - Limb discomfort [Unknown]
  - Swelling [Not Recovered/Not Resolved]
  - Ankle fracture [Unknown]
  - Psoriasis [Recovered/Resolved]
  - Osteoarthritis [Unknown]

NARRATIVE: CASE EVENT DATE: 202001
